FAERS Safety Report 10831281 (Version 1)
Quarter: 2015Q1

REPORT INFORMATION
  Report Type: Spontaneous
  Country: SA (occurrence: SA)
  Receive Date: 20150219
  Receipt Date: 20150219
  Transmission Date: 20150721
  Serious: Yes (Hospitalization, Other)
  Sender: FDA-Public Use
  Company Number: SA-BAXTER-2015BAX008939

PATIENT
  Sex: Male

DRUGS (6)
  1. KIOVIG [Suspect]
     Active Substance: HUMAN IMMUNOGLOBULIN G
     Indication: ACQUIRED HAEMOPHILIA
     Route: 042
     Dates: start: 200712
  2. KIOVIG [Suspect]
     Active Substance: HUMAN IMMUNOGLOBULIN G
     Indication: OFF LABEL USE
     Route: 042
  3. RFVIIA [Suspect]
     Active Substance: COAGULATION FACTOR VIIA HUMAN
     Indication: ACQUIRED HAEMOPHILIA
     Route: 065
     Dates: start: 200712
  4. ENDOXAN VIALS [Suspect]
     Active Substance: CYCLOPHOSPHAMIDE
     Indication: ACQUIRED HAEMOPHILIA
     Route: 065
     Dates: start: 200712
  5. ENDOXAN VIALS [Suspect]
     Active Substance: CYCLOPHOSPHAMIDE
     Indication: OFF LABEL USE
  6. RFVIIA [Suspect]
     Active Substance: COAGULATION FACTOR VIIA HUMAN
     Route: 065
     Dates: start: 201302

REACTIONS (6)
  - Haematuria [Recovered/Resolved]
  - Factor VIII inhibition [Recovered/Resolved]
  - Haemorrhage [Recovered/Resolved]
  - Peripheral swelling [Recovered/Resolved]
  - Factor VIII deficiency [Recovered/Resolved]
  - Epistaxis [Recovered/Resolved]
